FAERS Safety Report 15524203 (Version 2)
Quarter: 2018Q4

REPORT INFORMATION
  Report Type: Spontaneous
  Country: IT (occurrence: IT)
  Receive Date: 20181018
  Receipt Date: 20181026
  Transmission Date: 20190205
  Serious: Yes (Hospitalization, Other)
  Sender: FDA-Public Use
  Company Number: IT-PURDUE-GBR-2018-0060376

PATIENT
  Age: 53 Year
  Sex: Female
  Weight: 52 kg

DRUGS (9)
  1. METHYLPREDNISOLONE. [Suspect]
     Active Substance: METHYLPREDNISOLONE
     Indication: ASTHMA
     Dosage: 4 MG, DAILY (4 MG DAILY (TO BE INCREASED IN CASE OF AN EXACERBATION))
     Route: 065
  2. MONTELUKAST SODIUM. [Suspect]
     Active Substance: MONTELUKAST SODIUM
     Indication: ASTHMA
     Dosage: 10 MG, DAILY
     Route: 048
  3. FORMOTEROL FUMARATE [Suspect]
     Active Substance: FORMOTEROL FUMARATE
     Indication: ASTHMA
     Dosage: 100/6 MICROGRAM, TWO INHALATIONS TWICE DAILY PLUS AS NEEDED 2)
     Route: 055
  4. OMALIZUMAB. [Suspect]
     Active Substance: OMALIZUMAB
     Indication: ASTHMA
     Dosage: UNK
     Route: 065
     Dates: start: 2012
  5. BECLOMETHASONE DIPROPIONATE        /00212602/ [Suspect]
     Active Substance: BECLOMETHASONE DIPROPIONATE
     Indication: ASTHMA
     Dosage: (100/6 MICROGRAM, TWO INHALATIONS TWICE DAILY PLUS AS NEEDED 2)
     Route: 055
  6. TIOTROPIUM BROMIDE [Suspect]
     Active Substance: TIOTROPIUM BROMIDE
     Indication: ASTHMA
     Dosage: 18 MCG, DAILY (18 MICROGRAM PER DAY)
     Route: 065
  7. NON-PMN THEOPHYLLINE [Suspect]
     Active Substance: THEOPHYLLINE ANHYDROUS
     Indication: ASTHMA
     Dosage: 300 MG, BID
     Route: 065
  8. SINGULAIR [Suspect]
     Active Substance: MONTELUKAST SODIUM
     Indication: ASTHMA
     Dosage: 10 MG DAILY
     Route: 048
  9. XOLAIR [Suspect]
     Active Substance: OMALIZUMAB
     Indication: ASTHMA
     Dosage: 300 MG, UNK (300 MG, EVERY 4 WEEKS)
     Route: 058
     Dates: start: 2013

REACTIONS (4)
  - Asthmatic crisis [Recovered/Resolved]
  - Asthma [Recovered/Resolved]
  - Drug resistance [Unknown]
  - Therapeutic response decreased [Unknown]
